FAERS Safety Report 8358405-2 (Version None)
Quarter: 2012Q2

REPORT INFORMATION
  Report Type: 
  Country: None (occurrence: None)
  Receive Date: 20120514
  Receipt Date: 20120510
  Transmission Date: 20120825
  Serious: Yes (Life-Threatening, Hospitalization)
  Sender: FDA-Public Use
  Company Number: CA-AMGEN-CANCT2011039222

PATIENT
  Age: 50 Year
  Sex: Female
  Weight: 124.5 kg

DRUGS (21)
  1. CALCIUM [Concomitant]
     Dosage: 500 MG, BID
     Route: 048
     Dates: start: 20110507, end: 20110731
  2. PANTOPRAZOLE SODIUM [Concomitant]
     Dosage: 40 MG, QD
     Route: 048
     Dates: start: 20110527, end: 20110731
  3. CIPROFLOXACIN [Concomitant]
     Route: 048
     Dates: start: 20110510, end: 20110607
  4. DOCETAXEL [Concomitant]
     Dosage: 75 MG/M2, Q3WK
     Route: 042
     Dates: start: 20110506
  5. IBUPROFEN [Concomitant]
     Dosage: UNK UNK, PRN
     Route: 048
     Dates: start: 19800101
  6. TYLENOL (CAPLET) [Concomitant]
     Dosage: UNK UNK, PRN
     Dates: start: 20110502
  7. GAVISCON [Concomitant]
     Route: 048
     Dates: start: 20110509, end: 20110526
  8. LORATADINE [Concomitant]
     Route: 048
     Dates: start: 20110617, end: 20110817
  9. APREPITANT [Concomitant]
     Dosage: 80 MG, UNK
     Route: 048
     Dates: start: 20110617, end: 20110710
  10. OXYCODONE HCL [Concomitant]
     Dosage: 5 MG, PRN
     Route: 048
     Dates: start: 20110530, end: 20110823
  11. DOCUSATE CALCIUM [Concomitant]
     Dosage: UNK
     Route: 048
     Dates: start: 20110507, end: 20110711
  12. ZOFRAN [Concomitant]
     Dates: start: 20110506, end: 20110708
  13. CYCLOPHOSPHAMIDE [Concomitant]
     Dosage: 600 MG/M2, Q3WK
     Route: 042
     Dates: start: 20110506
  14. TORADOL [Concomitant]
     Dosage: UNK
     Route: 048
     Dates: start: 20110405, end: 20110827
  15. SENOKOT [Concomitant]
     Dosage: UNK UNK, PRN
     Route: 048
     Dates: start: 20110507, end: 20110711
  16. BENADRYL [Concomitant]
     Route: 048
     Dates: start: 20110607, end: 20110609
  17. DENOSUMAB [Suspect]
     Indication: BREAST CANCER
     Dosage: UNK UNK, Q3WK
     Route: 058
     Dates: start: 20110506
  18. DECADRON [Concomitant]
     Dosage: UNK MG, UNK
     Route: 048
     Dates: start: 20110505, end: 20110711
  19. MAXERAN [Concomitant]
     Dosage: 10 MG, PRN
     Route: 048
     Dates: start: 20110509, end: 20110712
  20. VITAMIN D [Concomitant]
     Dosage: 2000 IU, QD
     Route: 048
     Dates: start: 20110507, end: 20110731
  21. ZANTAC [Concomitant]
     Dosage: 150 MG, BID
     Route: 048
     Dates: start: 20110509, end: 20110817

REACTIONS (1)
  - PULMONARY EMBOLISM [None]
